FAERS Safety Report 5195296-5 (Version None)
Quarter: 2006Q4

REPORT INFORMATION
  Report Type: 
  Country: None (occurrence: None)
  Receive Date: 20061020
  Receipt Date: 20051121
  Transmission Date: 20070319
  Serious: Yes (Hospitalization)
  Sender: FDA-Public Use
  Company Number: US-JNJFOC-20050905266

PATIENT
  Age: 45 Year
  Sex: Female
  Weight: 72.5755 kg

DRUGS (6)
  1. FLEXERIL [Suspect]
     Indication: DRUG USE FOR UNKNOWN INDICATION
     Dosage: 5 MG, 2 IN 1 DAY, ORAL
     Route: 048
     Dates: start: 20050915, end: 20050918
  2. ALLEGRA [Concomitant]
  3. LIPITOR [Concomitant]
  4. NEXIUM [Concomitant]
  5. ESTRADIOL [Concomitant]
  6. ADVAIR (SERETIDE MITE) [Concomitant]

REACTIONS (1)
  - ANAPHYLACTIC REACTION [None]
